FAERS Safety Report 4371535-5 (Version None)
Quarter: 2004Q2

REPORT INFORMATION
  Report Type: 
  Country: None (occurrence: None)
  Receive Date: 20040602
  Receipt Date: 20040520
  Transmission Date: 20050107
  Serious: Yes (Hospitalization)
  Sender: FDA-Public Use
  Company Number: 04P-163-0261577-00

PATIENT
  Age: 45 Year
  Sex: Female
  Weight: 111.1313 kg

DRUGS (23)
  1. HUMIRA [Suspect]
     Indication: RHEUMATOID ARTHRITIS
     Dosage: 40 MG, 1 IN 2 WK, SUBCUTANEOUS
     Route: 058
     Dates: start: 20030401, end: 20030604
  2. HUMIRA [Suspect]
     Indication: RHEUMATOID ARTHRITIS
     Dosage: 40 MG, 1 IN 2 WK, SUBCUTANEOUS
     Route: 058
     Dates: start: 20030709, end: 20030711
  3. HUMIRA [Suspect]
     Indication: RHEUMATOID ARTHRITIS
     Dosage: 40 MG, 1 IN 2 WK, SUBCUTANEOUS
     Route: 058
     Dates: start: 20030806, end: 20040211
  4. HUMIRA [Suspect]
     Indication: RHEUMATOID ARTHRITIS
     Dosage: 40 MG, 1 IN 2 WK, SUBCUTANEOUS
     Route: 058
     Dates: start: 20040505
  5. BUPROPION HYDROCHLORIDE [Concomitant]
  6. LEXAPRO [Concomitant]
  7. MORPHINE SULFATE [Concomitant]
  8. METHOTREXATE SODIUM [Concomitant]
  9. PREDNISONE [Concomitant]
  10. LANSOPRAZOLE [Concomitant]
  11. CALCIUM CARBONATE [Concomitant]
  12. FOLIC ACID [Concomitant]
  13. ALENDRONATE SODIUM [Concomitant]
  14. ALBUTEROL SULFATE [Concomitant]
  15. CONJUGATED ESTROGEN [Concomitant]
  16. DOCUSATE SODIUM [Concomitant]
  17. BISACODYL [Concomitant]
  18. MERELAC [Concomitant]
  19. RETINOL [Concomitant]
  20. OXYCOCET [Concomitant]
  21. TEMAZEPAM [Concomitant]
  22. MAALOX [Concomitant]
  23. DIPHENHYDRAMINE HCL [Concomitant]

REACTIONS (6)
  - CELLULITIS [None]
  - CEREBROVASCULAR ACCIDENT [None]
  - HYSTERECTOMY [None]
  - INTERVERTEBRAL DISC PROTRUSION [None]
  - POSTOPERATIVE INFECTION [None]
  - STAPHYLOCOCCAL INFECTION [None]
